FAERS Safety Report 8438819-2 (Version None)
Quarter: 2012Q2

REPORT INFORMATION
  Report Type: 
  Country: None (occurrence: None)
  Receive Date: 20120608
  Receipt Date: 20120529
  Transmission Date: 20120825
  Serious: Yes (Other)
  Sender: FDA-Public Use
  Company Number: 2012SP016686

PATIENT
  Sex: Female

DRUGS (3)
  1. VICTRELIS [Suspect]
     Indication: HEPATITIS C
     Dates: start: 20120324
  2. RIBAVIRIN [Suspect]
     Indication: HEPATITIS C
     Dates: start: 20120224
  3. PEG-INTRON [Suspect]
     Indication: HEPATITIS C
     Dates: start: 20120224

REACTIONS (9)
  - NAUSEA [None]
  - CONTUSION [None]
  - FATIGUE [None]
  - PAIN [None]
  - HYPERTHYROIDISM [None]
  - ASTHENIA [None]
  - OESOPHAGEAL MUCOSA ERYTHEMA [None]
  - INJECTION SITE RASH [None]
  - BLOOD COUNT ABNORMAL [None]
